FAERS Safety Report 6191591-1 (Version None)
Quarter: 2009Q2

REPORT INFORMATION
  Report Type: 
  Country: None (occurrence: None)
  Receive Date: 20090515
  Receipt Date: 20090506
  Transmission Date: 20091009
  Serious: Yes (Other)
  Sender: FDA-Public Use
  Company Number: PHHY2009SI12152

PATIENT
  Sex: Female

DRUGS (4)
  1. ZOMETA [Suspect]
     Indication: METASTASES TO BONE
     Dosage: 4 MG EVERY 4 WEEKS
     Route: 042
     Dates: start: 20070131, end: 20080312
  2. ZOMETA [Suspect]
     Indication: BREAST CANCER
  3. ARIMIDEX [Concomitant]
  4. RADIATION THERAPY [Concomitant]

REACTIONS (13)
  - BONE DISORDER [None]
  - DEBRIDEMENT [None]
  - DENTAL PROSTHESIS PLACEMENT [None]
  - ERYTHEMA [None]
  - FISTULA [None]
  - GINGIVAL DISORDER [None]
  - MOUTH ULCERATION [None]
  - OSTEONECROSIS [None]
  - PAIN [None]
  - SOFT TISSUE INFECTION [None]
  - SWELLING [None]
  - TOOTH DISORDER [None]
  - TOOTH EXTRACTION [None]
